FAERS Safety Report 10237964 (Version 1)
Quarter: 2014Q2

REPORT INFORMATION
  Report Type: Spontaneous
  Country: US (occurrence: US)
  Receive Date: 20140616
  Receipt Date: 20140616
  Transmission Date: 20141212
  Serious: No
  Sender: FDA-Public Use
  Company Number: US-BIOGENIDEC-2014BI050117

PATIENT
  Sex: Female

DRUGS (1)
  1. TECFIDERA [Suspect]
     Indication: MULTIPLE SCLEROSIS
     Dates: start: 2013

REACTIONS (5)
  - Skin discolouration [Not Recovered/Not Resolved]
  - Heavy exposure to ultraviolet light [Not Recovered/Not Resolved]
  - Swelling [Not Recovered/Not Resolved]
  - Intentional underdose [Not Recovered/Not Resolved]
  - Erythema [Not Recovered/Not Resolved]
